FAERS Safety Report 8406542-6 (Version None)
Quarter: 2012Q2

REPORT INFORMATION
  Report Type: 
  Country: None (occurrence: None)
  Receive Date: 20120529
  Receipt Date: 20090123
  Transmission Date: 20120825
  Serious: Yes (Other)
  Sender: FDA-Public Use
  Company Number: 000347

PATIENT
  Age: 79 Year
  Sex: Female

DRUGS (9)
  1. PLETAL [Suspect]
     Indication: CEREBRAL INFARCTION
     Dosage: 200 MG, DAILY DOSE, ORAL
     Route: 048
     Dates: start: 20080119
  2. ATORVASTATIN CALCIUM [Concomitant]
  3. FLUNARIZINE HCL (FLUNARIZINE HCL) [Concomitant]
  4. ERDOSTEINE (ERDOSTEINE) [Concomitant]
  5. ACETYLCARNITINE HYDROCHLORIDE (ACETYLCARNITINE HYDROCHLORIDE) [Concomitant]
  6. CEFTRIAXONE [Concomitant]
  7. ESCITALOPRAM OXALATE [Concomitant]
  8. IVY LEAF DRIED EXTRACT (IVY LEAF DRIED EXTRACT) [Concomitant]
  9. REBAMIPIDE (REBAMIPIDE) [Concomitant]

REACTIONS (2)
  - PNEUMONIA [None]
  - STRESS CARDIOMYOPATHY [None]
